FAERS Safety Report 23654194 (Version 1)
Quarter: 2024Q1

REPORT INFORMATION
  Report Type: Report from Study
  Country: US (occurrence: US)
  Receive Date: 20240320
  Receipt Date: 20240320
  Transmission Date: 20240410
  Serious: No
  Sender: FDA-Public Use
  Company Number: US-INCYTE CORPORATION-2024IN001588

PATIENT

DRUGS (1)
  1. JAKAFI [Suspect]
     Active Substance: RUXOLITINIB
     Dosage: 10 MILLIGRAM
     Route: 065

REACTIONS (6)
  - Hand fracture [Unknown]
  - Fall [Unknown]
  - Fear [Unknown]
  - Confusional state [Unknown]
  - Product availability issue [Unknown]
  - Dizziness [Unknown]
